FAERS Safety Report 4364669-2 (Version None)
Quarter: 2004Q2

REPORT INFORMATION
  Report Type: 
  Country: None (occurrence: None)
  Receive Date: 20040521
  Receipt Date: 20040429
  Transmission Date: 20050107
  Serious: Yes (Hospitalization, Other)
  Sender: FDA-Public Use
  Company Number: USA040466292

PATIENT
  Age: 43 Year
  Sex: Male

DRUGS (2)
  1. CIALIS [Suspect]
     Dates: start: 20040425
  2. SILDENAFIL [Concomitant]

REACTIONS (3)
  - MEDICATION ERROR [None]
  - PRIAPISM [None]
  - SPONTANEOUS PENILE ERECTION [None]
